FAERS Safety Report 8463965-7 (Version None)
Quarter: 2012Q2

REPORT INFORMATION
  Report Type: 
  Country: None (occurrence: None)
  Receive Date: 20120625
  Receipt Date: 20120618
  Transmission Date: 20120825
  Serious: Yes (Life-Threatening, Hospitalization, Other)
  Sender: FDA-Public Use
  Company Number: CA-ABBOTT-12P-028-0910332-00

PATIENT
  Age: 43 Year
  Sex: Female

DRUGS (5)
  1. METHADONE HCL [Concomitant]
     Indication: PRODUCT USED FOR UNKNOWN INDICATION
     Route: 048
  2. SEROQUEL [Suspect]
     Indication: PSYCHOTIC DISORDER
     Dates: start: 20030101, end: 20101115
  3. VALPROATE SODIUM [Suspect]
     Indication: EPILEPSY
     Dosage: VARIABLE DOSE
     Route: 048
     Dates: start: 20040101, end: 20101115
  4. LORAZEPAM [Concomitant]
     Indication: PRODUCT USED FOR UNKNOWN INDICATION
     Route: 048
  5. ZOPICLONE [Concomitant]
     Indication: PRODUCT USED FOR UNKNOWN INDICATION

REACTIONS (2)
  - EPILEPSY [None]
  - CONVULSION [None]
